FAERS Safety Report 5371663-1 (Version None)
Quarter: 2007Q2

REPORT INFORMATION
  Report Type: 
  Country: None (occurrence: None)
  Receive Date: 20070627
  Receipt Date: 20070620
  Transmission Date: 20071010
  Serious: Yes (Other)
  Sender: FDA-Public Use
  Company Number: PHBS2007JP10644

PATIENT
  Age: 33 Year
  Sex: Female

DRUGS (2)
  1. TEGRETOL [Suspect]
     Indication: TEMPORAL LOBE EPILEPSY
     Route: 048
  2. EXCEGRAN [Concomitant]
     Route: 048

REACTIONS (2)
  - COMPLEX PARTIAL SEIZURES [None]
  - SOMNOLENCE [None]
